FAERS Safety Report 13647030 (Version 1)
Quarter: 2017Q2

REPORT INFORMATION
  Report Type: Spontaneous
  Country: ZA (occurrence: ZA)
  Receive Date: 20170613
  Receipt Date: 20170613
  Transmission Date: 20170830
  Serious: Yes (Death, Other)
  Sender: FDA-Public Use
  Company Number: ZA-LUPIN PHARMACEUTICALS INC.-2017-02968

PATIENT
  Sex: Female

DRUGS (10)
  1. LOSARTAN POTASSIUM. [Suspect]
     Active Substance: LOSARTAN POTASSIUM
     Indication: RENIN-ANGIOTENSIN SYSTEM INHIBITION
     Dosage: 100 MG, QD
     Route: 048
     Dates: start: 20161201, end: 20170514
  2. CITALOPRAM [Suspect]
     Active Substance: CITALOPRAM HYDROBROMIDE
     Indication: PRODUCT USED FOR UNKNOWN INDICATION
     Dosage: 20 MG, QD
     Route: 048
     Dates: start: 20161201, end: 20170514
  3. STILPANE /01538701/ [Suspect]
     Active Substance: ACETAMINOPHEN\CODEINE\OPIUM\PROMETHAZINE
     Indication: ANALGESIC THERAPY
     Dosage: 370 MG, 2-3 TIMES A DAY
     Route: 048
     Dates: start: 20161201, end: 20170514
  4. SLOW MAG /01486809/ [Suspect]
     Active Substance: MAGNESIUM
     Indication: PRODUCT USED FOR UNKNOWN INDICATION
     Dosage: 450 MG, QD
     Route: 048
     Dates: start: 20161201, end: 20170514
  5. ASPAVOR [Suspect]
     Active Substance: ATORVASTATIN
     Indication: PRODUCT USED FOR UNKNOWN INDICATION
     Dosage: 20 MG, QD
     Route: 048
     Dates: start: 20161201, end: 20170514
  6. ALTOSEC                            /00661201/ [Suspect]
     Active Substance: OMEPRAZOLE
     Indication: PRODUCT USED FOR UNKNOWN INDICATION
     Dosage: 20 MG, QD
     Route: 048
     Dates: start: 20161201, end: 20170514
  7. TRAMA HEXAL CO [Suspect]
     Active Substance: ACETAMINOPHEN\TRAMADOL HYDROCHLORIDE
     Indication: ANALGESIC THERAPY
     Dosage: 37.5/325 MG, QD
     Route: 048
     Dates: start: 20161201, end: 20170514
  8. GLUCOPHAGE [Suspect]
     Active Substance: METFORMIN HYDROCHLORIDE
     Indication: PRODUCT USED FOR UNKNOWN INDICATION
     Dosage: 500 MG, BID, AT NIGHT
     Route: 048
     Dates: start: 20161201, end: 20170514
  9. PLENISH-K [Suspect]
     Active Substance: POTASSIUM CHLORIDE
     Indication: MINERAL SUPPLEMENTATION
     Dosage: 600 MG, QD
     Route: 048
     Dates: start: 20161201, end: 20170514
  10. ZOLNOXS [Suspect]
     Active Substance: ZOLPIDEM TARTRATE
     Indication: SEDATIVE THERAPY
     Dosage: 10 MG, QD, AT NIGHT
     Route: 048
     Dates: start: 20161201, end: 20170514

REACTIONS (1)
  - Neoplasm malignant [Fatal]
